FAERS Safety Report 17596661 (Version 1)
Quarter: 2020Q1

REPORT INFORMATION
  Report Type: Spontaneous
  Country: NL (occurrence: NL)
  Receive Date: 20200330
  Receipt Date: 20200330
  Transmission Date: 20200409
  Serious: Yes (Congenital Anomaly)
  Sender: FDA-Public Use
  Company Number: NL-TEVA-2020-NL-1212421

PATIENT
  Age: 0 Week
  Sex: Male
  Weight: 3.2 kg

DRUGS (4)
  1. LABETALOL [Suspect]
     Active Substance: LABETALOL\LABETALOL HYDROCHLORIDE
     Indication: HYPERTENSION
     Dosage: 600 MILLIGRAM DAILY; 2 (300 MG TWICE A DAY)
     Route: 065
  2. METHYLDOPA. [Suspect]
     Active Substance: METHYLDOPA
     Indication: HYPERTENSION
     Dosage: 750 MILLIGRAM DAILY; 3X DAILY (250 MG 3X DAILY)
     Route: 065
  3. FOOD SUPPLEMENT DAVITAMON MAMA PLUS [Concomitant]
     Dosage: 1 DOSAGE FORMS DAILY; 1XDAILY
  4. LABETALOL [Suspect]
     Active Substance: LABETALOL\LABETALOL HYDROCHLORIDE
     Dosage: 2 (2 X DAAGS 200 MG)

REACTIONS (2)
  - Deafness congenital [Unknown]
  - Maternal exposure during pregnancy [Unknown]
